FAERS Safety Report 5201349-5 (Version None)
Quarter: 2006Q4

REPORT INFORMATION
  Report Type: 
  Country: None (occurrence: None)
  Receive Date: 20061016
  Receipt Date: 20020318
  Transmission Date: 20070319
  Serious: Yes (Hospitalization)
  Sender: FDA-Public Use
  Company Number: PHEH2002US02716

PATIENT
  Age: 82 Year
  Sex: Female

DRUGS (1)
  1. MIACALCIN [Suspect]
     Indication: ARTHRITIS
     Dosage: QD, INTRANASAL

REACTIONS (1)
  - POLYMYALGIA RHEUMATICA [None]
